FAERS Safety Report 4975749-2 (Version None)
Quarter: 2006Q2

REPORT INFORMATION
  Report Type: 
  Country: None (occurrence: None)
  Receive Date: 20060411
  Receipt Date: 20060329
  Transmission Date: 20061013
  Serious: Yes (Other)
  Sender: FDA-Public Use
  Company Number: 2006044396

PATIENT
  Age: 64 Year
  Sex: Female

DRUGS (4)
  1. XALATAN [Suspect]
     Indication: INTRAOCULAR PRESSURE INCREASED
     Dosage: 1 DROP PER EYE (1 D), INTRAOCULAR
     Route: 031
  2. LEVOTHYROXINE SODIUM [Concomitant]
  3. TAHOR (ATORVASTATIN) [Concomitant]
  4. PROZAC [Concomitant]

REACTIONS (3)
  - HEADACHE [None]
  - VITREOUS DETACHMENT [None]
  - VITREOUS FLOATERS [None]
